FAERS Safety Report 23153177 (Version 3)
Quarter: 2023Q4

REPORT INFORMATION
  Report Type: Spontaneous
  Country: AR (occurrence: AR)
  Receive Date: 20231107
  Receipt Date: 20231222
  Transmission Date: 20240110
  Serious: Yes (Other)
  Sender: FDA-Public Use
  Company Number: AR-002147023-NVSC2023AR126833

PATIENT
  Age: 40 Year
  Sex: Female
  Weight: 105 kg

DRUGS (7)
  1. COSENTYX [Suspect]
     Active Substance: SECUKINUMAB
     Indication: Psoriatic arthropathy
     Dosage: 300 MG, QMO
     Route: 058
     Dates: start: 20230414
  2. COSENTYX [Suspect]
     Active Substance: SECUKINUMAB
     Dosage: 600 MG, QMO
     Route: 058
  3. COSENTYX [Suspect]
     Active Substance: SECUKINUMAB
     Indication: Psoriasis
     Dosage: 300 MG, QMO
     Route: 058
     Dates: start: 20230412
  4. COSENTYX [Suspect]
     Active Substance: SECUKINUMAB
     Dosage: 600 MG, QMO
     Route: 058
  5. CYCLOSPORINE [Suspect]
     Active Substance: CYCLOSPORINE
     Indication: Psoriatic arthropathy
     Dosage: UNK
     Route: 065
  6. CYCLOSPORINE [Suspect]
     Active Substance: CYCLOSPORINE
     Indication: Product used for unknown indication
  7. METHOTREXATE [Suspect]
     Active Substance: METHOTREXATE
     Indication: Product used for unknown indication
     Dosage: UNK
     Route: 065

REACTIONS (16)
  - Psoriatic arthropathy [Unknown]
  - Liver disorder [Unknown]
  - Skin lesion [Unknown]
  - Ear pain [Unknown]
  - Skin plaque [Unknown]
  - Aphonia [Unknown]
  - Limb injury [Recovered/Resolved]
  - Skin exfoliation [Unknown]
  - Erythema [Unknown]
  - Vomiting [Unknown]
  - Psoriasis [Unknown]
  - Accidental exposure to product [Unknown]
  - Drug effect less than expected [Unknown]
  - Device defective [Unknown]
  - Incorrect dose administered [Unknown]
  - Drug intolerance [Unknown]

NARRATIVE: CASE EVENT DATE: 20230401
